FAERS Safety Report 5225561-4 (Version None)
Quarter: 2007Q1

REPORT INFORMATION
  Report Type: 
  Country: None (occurrence: None)
  Receive Date: 20070131
  Receipt Date: 20070122
  Transmission Date: 20070707
  Serious: Yes (Other)
  Sender: FDA-Public Use
  Company Number: JP-PFIZER INC-2007006547

PATIENT
  Age: 89 Year
  Sex: Female

DRUGS (9)
  1. DETRUSITOL SR [Suspect]
     Indication: HYPERTONIC BLADDER
     Dosage: DAILY DOSE:4MG
     Route: 048
     Dates: start: 20070104, end: 20070119
  2. BUP-4 [Concomitant]
     Indication: HYPERTONIC BLADDER
     Dosage: DAILY DOSE:20MG
     Route: 048
  3. BLADDERON [Concomitant]
     Indication: HYPERTONIC BLADDER
     Dosage: DAILY DOSE:200MG
     Route: 048
  4. LOXONIN [Concomitant]
     Indication: OSTEOARTHRITIS
     Route: 048
  5. SELBEX [Concomitant]
     Indication: GASTRITIS
     Route: 048
  6. MAGNESIUM OXIDE [Concomitant]
     Indication: GASTRITIS
     Route: 048
  7. EVISTA [Concomitant]
     Indication: OSTEOPOROSIS
     Route: 048
     Dates: start: 20061111
  8. AMLODIPINE BESYLATE [Concomitant]
     Indication: HYPERTENSION
     Route: 048
  9. GASTER [Concomitant]
     Indication: GASTRITIS
     Route: 048
     Dates: start: 20061007

REACTIONS (2)
  - ELECTROCARDIOGRAM QT PROLONGED [None]
  - LOSS OF CONSCIOUSNESS [None]
